FAERS Safety Report 19008875 (Version 2)
Quarter: 2021Q1

REPORT INFORMATION
  Report Type: Spontaneous
  Country: AU (occurrence: AU)
  Receive Date: 20210315
  Receipt Date: 20210322
  Transmission Date: 20210420
  Serious: Yes (Other)
  Sender: FDA-Public Use
  Company Number: AU-ENDO PHARMACEUTICALS INC-2021-001636

PATIENT
  Age: 27 Year
  Sex: Male

DRUGS (5)
  1. HYDROCORTISONE ACETATE. [Concomitant]
     Active Substance: HYDROCORTISONE ACETATE
     Indication: PRODUCT USED FOR UNKNOWN INDICATION
     Dosage: 8 MG ORALLY IN THE MORNING AND 4 MG IN THE AFTERNOON
     Route: 048
  2. THYROXINE [Concomitant]
     Active Substance: LEVOTHYROXINE
     Indication: PRODUCT USED FOR UNKNOWN INDICATION
     Dosage: 150 MCG, DAILY
     Route: 065
  3. DESMOPRESSIN [Concomitant]
     Active Substance: DESMOPRESSIN
     Indication: PRODUCT USED FOR UNKNOWN INDICATION
     Dosage: 400 MCG, BID
     Route: 065
  4. SOMATROPIN. [Concomitant]
     Active Substance: SOMATROPIN
     Indication: PRODUCT USED FOR UNKNOWN INDICATION
     Dosage: 0.2 MG, DAILY
     Route: 065
  5. AVEED [Suspect]
     Active Substance: TESTOSTERONE UNDECANOATE
     Indication: HYPOPITUITARISM
     Dosage: 1 G, EVERY 3 MONTHS
     Route: 030

REACTIONS (10)
  - Type 2 diabetes mellitus [Unknown]
  - Diabetes insipidus [Unknown]
  - Hypothalamo-pituitary disorder [Unknown]
  - Nonalcoholic fatty liver disease [Unknown]
  - Metabolic syndrome [Unknown]
  - Obesity [Unknown]
  - Hyperphagia [Unknown]
  - Depressed mood [Unknown]
  - Emotional poverty [Unknown]
  - Hypopituitarism [Unknown]
